FAERS Safety Report 6994268-5 (Version None)
Quarter: 2010Q3

REPORT INFORMATION
  Report Type: 
  Country: None (occurrence: None)
  Receive Date: 20100917
  Receipt Date: 20100311
  Transmission Date: 20110219
  Serious: Yes (Hospitalization, Other)
  Sender: FDA-Public Use
  Company Number: US-ASTRAZENECA-2009UW20588

PATIENT
  Age: 17994 Day
  Sex: Female

DRUGS (4)
  1. SEROQUEL [Suspect]
     Route: 048
  2. ABILIFY [Concomitant]
     Dates: start: 20060511
  3. SYNTHROID [Concomitant]
     Dates: start: 20060511
  4. NORVASC [Concomitant]
     Dates: start: 20060511

REACTIONS (3)
  - DIABETES MELLITUS [None]
  - KETOACIDOSIS [None]
  - PANCREATITIS [None]
